FAERS Safety Report 17544014 (Version 1)
Quarter: 2020Q1

REPORT INFORMATION
  Report Type: Spontaneous
  Country: US (occurrence: US)
  Receive Date: 20200306
  Receipt Date: 20200306
  Transmission Date: 20200409
  Serious: No
  Sender: FDA-Public Use
  Company Number: None

PATIENT
  Sex: Female

DRUGS (2)
  1. KISQALI [Suspect]
     Active Substance: RIBOCICLIB
     Indication: BREAST CANCER FEMALE
     Route: 048
     Dates: start: 20191010
  2. ATIVAN [Suspect]
     Active Substance: LORAZEPAM
     Indication: BREAST CANCER FEMALE

REACTIONS (4)
  - Nausea [None]
  - Impaired work ability [None]
  - Somnolence [None]
  - Condition aggravated [None]
